FAERS Safety Report 21823510 (Version 1)
Quarter: 2023Q1

REPORT INFORMATION
  Report Type: Spontaneous
  Country: US (occurrence: US)
  Receive Date: 20230105
  Receipt Date: 20230105
  Transmission Date: 20230417
  Serious: Yes (Other)
  Sender: FDA-Public Use
  Company Number: US-UCBSA-2023000387

PATIENT
  Age: 52 Year
  Sex: Male

DRUGS (1)
  1. BRIVIACT [Suspect]
     Active Substance: BRIVARACETAM
     Indication: Epilepsy
     Dosage: UNK
     Dates: start: 2017, end: 20230101

REACTIONS (7)
  - Central nervous system lesion [Not Recovered/Not Resolved]
  - Hypertrophic cardiomyopathy [Unknown]
  - Neurogenic bladder [Not Recovered/Not Resolved]
  - Memory impairment [Not Recovered/Not Resolved]
  - Scar [Not Recovered/Not Resolved]
  - Cognitive disorder [Not Recovered/Not Resolved]
  - Headache [Not Recovered/Not Resolved]

NARRATIVE: CASE EVENT DATE: 20230101
